FAERS Safety Report 5231763-3 (Version None)
Quarter: 2007Q1

REPORT INFORMATION
  Report Type: 
  Country: None (occurrence: None)
  Receive Date: 20070206
  Receipt Date: 20070202
  Transmission Date: 20070707
  Serious: Yes (Hospitalization)
  Sender: FDA-Public Use
  Company Number: DE-BOEHRINGER INGELHEIM PHARMACEUTICALS, INC.-2007-DE-00641DE

PATIENT
  Sex: Male

DRUGS (2)
  1. AGGRENOX [Suspect]
     Route: 048
  2. IBUPROFEN [Suspect]
     Route: 048

REACTIONS (5)
  - DRUG ABUSER [None]
  - OVERDOSE [None]
  - SOPOR [None]
  - SUICIDE ATTEMPT [None]
  - TACHYCARDIA [None]
